FAERS Safety Report 10687332 (Version 1)
Quarter: 2015Q1

REPORT INFORMATION
  Report Type: Spontaneous
  Country: FR (occurrence: FR)
  Receive Date: 20150102
  Receipt Date: 20150102
  Transmission Date: 20150720
  Serious: Yes (Hospitalization)
  Sender: FDA-Public Use
  Company Number: FR-ROCHE-1515678

PATIENT
  Age: 5 Year
  Sex: Female
  Weight: 25 kg

DRUGS (7)
  1. RIVOTRIL [Suspect]
     Active Substance: CLONAZEPAM
     Indication: EPILEPSY
     Route: 048
     Dates: start: 20141125
  2. KEPPRA [Concomitant]
     Active Substance: LEVETIRACETAM
     Route: 065
     Dates: start: 201405, end: 20141124
  3. EPITOMAX [Concomitant]
     Active Substance: TOPIRAMATE
     Route: 065
     Dates: start: 20141022
  4. MICROPAKINE [Suspect]
     Active Substance: VALPROIC ACID
     Indication: EPILEPSY
     Dosage: 100 MG 4 SACHETS
     Route: 048
     Dates: start: 201409
  5. ZARONTIN [Concomitant]
     Active Substance: ETHOSUXIMIDE
  6. RIVOTRIL [Suspect]
     Active Substance: CLONAZEPAM
     Indication: EPILEPSY
     Route: 042
     Dates: start: 20141112, end: 20141116
  7. VALIUM [Concomitant]
     Active Substance: DIAZEPAM
     Route: 042

REACTIONS (1)
  - Somnolence [Recovered/Resolved]

NARRATIVE: CASE EVENT DATE: 20141114
